FAERS Safety Report 21472472 (Version 3)
Quarter: 2022Q4

REPORT INFORMATION
  Report Type: Report from Study
  Country: CA (occurrence: CA)
  Receive Date: 20221018
  Receipt Date: 20221107
  Transmission Date: 20230113
  Serious: Yes (Death, Hospitalization, Other)
  Sender: FDA-Public Use
  Company Number: CA-BRISTOL-MYERS SQUIBB COMPANY-2022-108075

PATIENT
  Age: 61 Year
  Sex: Male
  Weight: 101 kg

DRUGS (27)
  1. CARBOPLATIN [Suspect]
     Active Substance: CARBOPLATIN
     Indication: Non-small cell lung cancer
     Route: 065
     Dates: start: 20220531, end: 20220531
  2. CARBOPLATIN [Suspect]
     Active Substance: CARBOPLATIN
     Route: 065
     Dates: start: 20220719, end: 20220719
  3. PACLITAXEL [Suspect]
     Active Substance: PACLITAXEL
     Indication: Non-small cell lung cancer
     Route: 065
     Dates: start: 20220719, end: 20220719
  4. PACLITAXEL [Suspect]
     Active Substance: PACLITAXEL
     Route: 065
     Dates: start: 20220531, end: 20220531
  5. LORAZEPAM [Concomitant]
     Active Substance: LORAZEPAM
     Indication: Adverse event
     Dosage: AS NEEDED
     Route: 048
     Dates: start: 20220726
  6. LORAZEPAM [Concomitant]
     Active Substance: LORAZEPAM
     Indication: Product used for unknown indication
  7. MORPHINE [Concomitant]
     Active Substance: MORPHINE
     Indication: Adverse event
     Dosage: AS NEEDED
     Route: 048
     Dates: start: 20220802
  8. MORPHINE [Concomitant]
     Active Substance: MORPHINE
     Indication: Product used for unknown indication
  9. PREGABALIN [Concomitant]
     Active Substance: PREGABALIN
     Indication: Product used for unknown indication
     Dosage: BD; TWICE PER DAY
     Route: 048
     Dates: start: 2018
  10. PREGABALIN [Concomitant]
     Active Substance: PREGABALIN
  11. MAGNESIUM [Concomitant]
     Active Substance: MAGNESIUM
     Indication: Prophylaxis
     Dosage: BD; TWICE PER DAY
     Route: 048
     Dates: start: 20220620
  12. PREGABALIN [Concomitant]
     Active Substance: PREGABALIN
     Indication: Product used for unknown indication
     Dosage: BD; TWICE PER DAY
     Route: 048
     Dates: start: 20220728
  13. AVELOX [Concomitant]
     Active Substance: MOXIFLOXACIN HYDROCHLORIDE
     Indication: Product used for unknown indication
     Dosage: EVERY 9 HOURS
     Route: 048
     Dates: start: 20220830, end: 20220903
  14. PIPERACILLIN SODIUM\TAZOBACTAM SODIUM [Concomitant]
     Active Substance: PIPERACILLIN SODIUM\TAZOBACTAM SODIUM
     Indication: Adverse event
     Dosage: EVERY 6 HOURS
     Route: 042
     Dates: start: 20220915, end: 20220920
  15. ASPIRIN [Concomitant]
     Active Substance: ASPIRIN
     Indication: Product used for unknown indication
     Dosage: DAILY; PER DAY
     Route: 048
     Dates: start: 2021
  16. VITAMIN B1 [Concomitant]
     Active Substance: THIAMINE HYDROCHLORIDE
     Indication: Product used for unknown indication
     Dosage: DAILY; PER DAY
     Route: 048
     Dates: start: 2011
  17. VITAMIN D3 [Concomitant]
     Active Substance: CHOLECALCIFEROL
     Indication: Product used for unknown indication
     Dosage: ONE TIME PER WEEK, UNIT DOSE 10000,UNITS NOS
     Route: 048
     Dates: start: 2016
  18. INSULIN LISPRO [Concomitant]
     Active Substance: INSULIN LISPRO
     Indication: Product used for unknown indication
     Dosage: 3 TIMES PER DAY, UNIT DOSE 100 , UNITS NOS
     Route: 058
     Dates: start: 2021
  19. NPH INSULIN [Concomitant]
     Active Substance: INSULIN BEEF
     Indication: Product used for unknown indication
     Dosage: 100 UNIT NOT PROVIDED, PER DAY
     Route: 058
     Dates: start: 2021
  20. HEPARIN [Concomitant]
     Active Substance: HEPARIN SODIUM
     Indication: Prophylaxis
     Dosage: 5000 UNIT NOT PROVIDED, PER DAY
     Route: 058
     Dates: start: 20220915
  21. ROSUVASTATIN [Concomitant]
     Active Substance: ROSUVASTATIN
     Indication: Product used for unknown indication
     Route: 048
     Dates: start: 2020
  22. LIDOCAINE-ORLO [Concomitant]
     Indication: Product used for unknown indication
     Dosage: 2 UNIT NOT PROVIDED, AS NEEDED
     Route: 048
     Dates: start: 20220726
  23. CANDERSARTAN [Concomitant]
     Indication: Product used for unknown indication
     Route: 048
     Dates: start: 2021
  24. PREDNISONE [Concomitant]
     Active Substance: PREDNISONE
     Indication: Product used for unknown indication
     Route: 048
     Dates: start: 20220829, end: 20220906
  25. PREDNISONE [Concomitant]
     Active Substance: PREDNISONE
     Route: 048
     Dates: start: 20220908, end: 20220914
  26. CALCIUM CARBONATE [Concomitant]
     Active Substance: CALCIUM CARBONATE
     Indication: Product used for unknown indication
     Route: 048
     Dates: start: 2020
  27. DELIXANT [Concomitant]
     Indication: Product used for unknown indication
     Route: 048
     Dates: start: 2012

REACTIONS (2)
  - Pneumonitis [Fatal]
  - Pneumonia [Not Recovered/Not Resolved]

NARRATIVE: CASE EVENT DATE: 20220915
